FAERS Safety Report 4501393-7 (Version None)
Quarter: 2004Q4

REPORT INFORMATION
  Report Type: 
  Country: None (occurrence: None)
  Receive Date: 20041110
  Receipt Date: 20041101
  Transmission Date: 20050328
  Serious: Yes (Other)
  Sender: FDA-Public Use
  Company Number: 2004-10-1759

PATIENT
  Age: 20 Year
  Sex: Male

DRUGS (3)
  1. INTRON A [Suspect]
     Indication: HAEMANGIOMA
     Dosage: SEE IMAGE
     Route: 058
     Dates: start: 20000601, end: 20040101
  2. INTRON A [Suspect]
     Indication: HAEMANGIOMA
     Dosage: SEE IMAGE
     Route: 058
     Dates: start: 20040101
  3. MINOCYCLINE HCL [Concomitant]

REACTIONS (4)
  - BONE DENSITY DECREASED [None]
  - CONTACT LENS COMPLICATION [None]
  - PERIODONTAL DISEASE [None]
  - VISUAL DISTURBANCE [None]
